FAERS Safety Report 6038685-9 (Version None)
Quarter: 2009Q1

REPORT INFORMATION
  Report Type: 
  Country: None (occurrence: None)
  Receive Date: 20090115
  Receipt Date: 20090107
  Transmission Date: 20090719
  Serious: Yes (Hospitalization, Other)
  Sender: FDA-Public Use
  Company Number: GB-JNJFOC-20080605855

PATIENT
  Sex: Male
  Weight: 135 kg

DRUGS (6)
  1. REMICADE [Suspect]
     Indication: PSORIATIC ARTHROPATHY
     Route: 042
  2. AMLODIPINE [Concomitant]
  3. ATENOLOL [Concomitant]
  4. OMEPRAZOLE [Concomitant]
  5. VOLTAREN [Concomitant]
  6. METHOTREXATE [Concomitant]

REACTIONS (1)
  - MALIGNANT MELANOMA [None]
